FAERS Safety Report 7333473-5 (Version None)
Quarter: 2011Q1

REPORT INFORMATION
  Report Type: 
  Country: None (occurrence: None)
  Receive Date: 20110304
  Receipt Date: 20110218
  Transmission Date: 20110831
  Serious: Yes (Other)
  Sender: FDA-Public Use
  Company Number: JP-CELGENEUS-087-21880-11010915

PATIENT
  Sex: Male

DRUGS (13)
  1. REVLIMID [Suspect]
     Indication: REFRACTORY CANCER
     Dosage: 15 MILLIGRAM
     Route: 048
     Dates: start: 20101211, end: 20101213
  2. LORFENAMIN [Concomitant]
     Dosage: 180 MILLIGRAM
     Route: 048
     Dates: end: 20110106
  3. REVLIMID [Suspect]
     Indication: MULTIPLE MYELOMA
     Dosage: 15 MILLIGRAM
     Route: 048
     Dates: start: 20101130, end: 20101206
  4. LENADEX [Suspect]
     Indication: MULTIPLE MYELOMA
     Dosage: 20 MILLIGRAM
     Route: 048
     Dates: start: 20101130, end: 20101203
  5. BAKTAR [Concomitant]
     Indication: PROPHYLAXIS
     Dosage: 1 TABLET
     Route: 048
     Dates: end: 20110106
  6. CRESTOR [Concomitant]
     Dosage: 2.5 MILLIGRAM
     Route: 048
     Dates: end: 20110106
  7. ALOSITOL [Concomitant]
     Dosage: 200 MILLIGRAM
     Route: 048
     Dates: end: 20110106
  8. OMEPRAL [Concomitant]
     Indication: PROPHYLAXIS
     Dosage: 10 MILLIGRAM
     Route: 048
     Dates: end: 20110106
  9. REVLIMID [Suspect]
     Dosage: 5 MILLIGRAM
     Route: 048
     Dates: start: 20101218, end: 20101228
  10. ITRIZOLE [Concomitant]
     Indication: PROPHYLAXIS
     Dosage: 200 MILLIGRAM
     Route: 048
     Dates: end: 20110106
  11. LENADEX [Suspect]
     Indication: REFRACTORY CANCER
  12. ZOSYN [Concomitant]
     Indication: FEBRILE NEUTROPENIA
     Route: 065
     Dates: start: 20101205
  13. VALTREX [Concomitant]
     Indication: PROPHYLAXIS
     Dosage: 500 MILLIGRAM
     Route: 048
     Dates: end: 20110106

REACTIONS (4)
  - DEVICE RELATED INFECTION [None]
  - HEPATIC FUNCTION ABNORMAL [None]
  - NEUTROPENIA [None]
  - RASH [None]
